FAERS Safety Report 7578922-2 (Version None)
Quarter: 2011Q2

REPORT INFORMATION
  Report Type: 
  Country: None (occurrence: None)
  Receive Date: 20110628
  Receipt Date: 20091124
  Transmission Date: 20111010
  Serious: Yes (Other)
  Sender: FDA-Public Use
  Company Number: PHBS2009DE01126

PATIENT
  Sex: Male
  Weight: 65 kg

DRUGS (13)
  1. SANDOSTATIN LAR [Suspect]
     Dosage: 30 MG, UNK
     Route: 030
  2. OPIUM [Concomitant]
  3. IMODIUM [Concomitant]
  4. AFINITOR [Concomitant]
     Dosage: 10 MG, UNK
  5. PLAVIX [Concomitant]
     Dosage: 75 DF, UNK
  6. SANDOSTATIN LAR [Suspect]
     Dosage: 20 MG, UNK
     Route: 030
     Dates: end: 20100201
  7. CIBACEN [Concomitant]
  8. ASPIRIN [Concomitant]
  9. BISOPROLOL FUMARATE [Concomitant]
  10. ESIDRIX [Concomitant]
  11. ATORVASTATIN CALCIUM [Concomitant]
     Dosage: 20 DF, UNK
  12. SANDOSTATIN LAR [Suspect]
     Dosage: 10 MG, UNK
     Route: 030
     Dates: start: 20091119
  13. SANDOSTATIN LAR [Suspect]
     Dosage: 40 MG, UNK
     Route: 030
     Dates: start: 20101010, end: 20101010

REACTIONS (3)
  - GENERAL PHYSICAL HEALTH DETERIORATION [None]
  - DIARRHOEA [None]
  - WEIGHT DECREASED [None]
